FAERS Safety Report 10015559 (Version 3)
Quarter: 2014Q4

REPORT INFORMATION
  Report Type: Spontaneous
  Country: FR (occurrence: FR)
  Receive Date: 20140317
  Receipt Date: 20141126
  Transmission Date: 20150528
  Serious: Yes (Hospitalization)
  Sender: FDA-Public Use
  Company Number: FR-ELI_LILLY_AND_COMPANY-FR201403003658

PATIENT
  Age: 81 Year
  Sex: Female

DRUGS (10)
  1. LASILIX [Concomitant]
     Active Substance: FUROSEMIDE
  2. DIFFU K [Concomitant]
     Active Substance: POTASSIUM CHLORIDE
  3. TANGANIL [Concomitant]
     Active Substance: ACETYLLEUCINE
  4. RIVOTRIL [Concomitant]
     Active Substance: CLONAZEPAM
  5. KARDEGIC [Concomitant]
     Active Substance: ASPIRIN LYSINE
  6. RITUXIMAB [Concomitant]
     Active Substance: RITUXIMAB
     Indication: NEUROPATHY PERIPHERAL
     Dosage: UNK
     Dates: start: 201007
  7. DULOXETINE HYDROCHLORIDE. [Suspect]
     Active Substance: DULOXETINE HYDROCHLORIDE
     Indication: NEURALGIA
     Dosage: 30 MG, QD
     Route: 048
     Dates: start: 201206, end: 201207
  8. LECTIL [Concomitant]
     Active Substance: BETAHISTINE HYDROCHLORIDE
  9. MOPRAL [Concomitant]
     Active Substance: OMEPRAZOLE SODIUM
  10. DULOXETINE HYDROCHLORIDE. [Suspect]
     Active Substance: DULOXETINE HYDROCHLORIDE
     Dosage: 60 MG, OTHER
     Route: 048
     Dates: end: 20120820

REACTIONS (2)
  - Colitis microscopic [Recovered/Resolved]
  - Off label use [Unknown]

NARRATIVE: CASE EVENT DATE: 201207
